FAERS Safety Report 9498503 (Version 2)
Quarter: 2013Q4

REPORT INFORMATION
  Report Type: Spontaneous
  Country: US (occurrence: US)
  Receive Date: 20130904
  Receipt Date: 20131025
  Transmission Date: 20140711
  Serious: Yes (Hospitalization)
  Sender: FDA-Public Use
  Company Number: US-GLAXOSMITHKLINE-A1039956A

PATIENT
  Age: 62 Year
  Sex: Female

DRUGS (1)
  1. VOTRIENT [Suspect]
     Indication: NEOPLASM MALIGNANT
     Dosage: 200MG UNKNOWN
     Route: 065
     Dates: start: 20120924, end: 20130806

REACTIONS (1)
  - Bladder operation [Unknown]
